FAERS Safety Report 11255853 (Version 1)
Quarter: 2015Q3

REPORT INFORMATION
  Report Type: Spontaneous
  Country: US (occurrence: US)
  Receive Date: 20150709
  Receipt Date: 20150709
  Transmission Date: 20151125
  Serious: No
  Sender: FDA-Public Use
  Company Number: US-TEVA-576579USA

PATIENT
  Age: 28 Year
  Sex: Male

DRUGS (1)
  1. COPAXONE [Suspect]
     Active Substance: GLATIRAMER ACETATE
     Indication: MULTIPLE SCLEROSIS
     Dosage: 20 MILLIGRAM/MILLILITERS DAILY;
     Route: 058

REACTIONS (9)
  - Injection site mass [Unknown]
  - Fatigue [Recovered/Resolved]
  - Fatigue [Unknown]
  - Dizziness [Unknown]
  - Drug dose omission [Unknown]
  - Pain [Unknown]
  - Feeling drunk [Unknown]
  - Pruritus [Unknown]
  - Diplopia [Unknown]
